FAERS Safety Report 6646276-1 (Version None)
Quarter: 2010Q1

REPORT INFORMATION
  Report Type: 
  Country: None (occurrence: None)
  Receive Date: 20100323
  Receipt Date: 20100315
  Transmission Date: 20100710
  Serious: Yes (Hospitalization)
  Sender: FDA-Public Use
  Company Number: IL-ROCHE-691225

PATIENT
  Sex: Female
  Weight: 78 kg

DRUGS (4)
  1. TRASTUZUMAB [Suspect]
     Indication: BREAST CANCER
     Dosage: LAST DOSE PRIOR TO SAE: 01-MAR-2010; FORM: VIAL; DOSE LEVEL: 6 MG/KG
     Route: 042
     Dates: start: 20100111
  2. BEVACIZUMAB [Suspect]
     Indication: BREAST CANCER
     Dosage: LAST DOSE PRIOR TO SAE: 01-MAR-2010; FORM: VIAL; DOSE LEVEL: 15 MG/KG
     Route: 042
     Dates: start: 20100111
  3. DOCETAXEL [Suspect]
     Indication: BREAST CANCER
     Dosage: LAST DOSE PRIOR TO SAE: 01-MAR-2010; FORM: VIAL; DOSE LEVEL: 75 MG/M2
     Route: 042
     Dates: start: 20100111
  4. CARBOPLATIN [Suspect]
     Indication: BREAST CANCER
     Dosage: LAST DOSE PRIOR TO SAE: 01-MAR-2010; FORM: VIAL; DOSE LEVEL: 6 AUC
     Route: 042
     Dates: start: 20100111

REACTIONS (2)
  - FEBRILE NEUTROPENIA [None]
  - THROMBOCYTOPENIA [None]
